FAERS Safety Report 9796269 (Version 1)
Quarter: 2014Q1

REPORT INFORMATION
  Report Type: Not Available
  Country: GB (occurrence: GB)
  Receive Date: 20140103
  Receipt Date: 20140103
  Transmission Date: 20141002
  Serious: Yes (Other)
  Sender: FDA-Public Use
  Company Number: GB-ASTELLAS-2013EU011488

PATIENT
  Sex: Female

DRUGS (16)
  1. TACROLIMUS SYSTEMIC [Suspect]
     Indication: LIVER TRANSPLANT
     Dosage: 0.5 MG, UID/QD
     Route: 048
     Dates: start: 20080702
  2. TACROLIMUS SYSTEMIC [Interacting]
     Dosage: 1 MG, UID/QD
     Route: 048
     Dates: start: 20080702
  3. MYCOPHENOLATE MOFETIL [Suspect]
     Indication: LIVER TRANSPLANT
     Dosage: 1 G, BID
     Route: 048
     Dates: start: 20080702
  4. VORICONAZOLE [Interacting]
     Indication: ASPERGILLUS INFECTION
     Dosage: 175 MG, BID
     Route: 048
     Dates: start: 20130925, end: 201310
  5. VORICONAZOLE [Interacting]
     Dosage: 150 MG, BID
     Route: 048
     Dates: start: 201310
  6. VORICONAZOLE [Interacting]
     Dosage: 175 MG, BID
     Route: 048
  7. ACETYLCYSTEINE [Concomitant]
     Dosage: UNK
     Route: 065
  8. TOCOPHEROL [Concomitant]
     Dosage: UNK
     Route: 065
  9. ASPIRIN [Concomitant]
     Dosage: UNK
     Route: 065
  10. BUDESONIDE W/FORMOTEROL FUMARATE [Concomitant]
     Dosage: UNK
     Route: 065
  11. CETIRIZINE [Concomitant]
     Dosage: UNK
     Route: 065
  12. COLECALCIFEROL [Concomitant]
     Dosage: UNK
     Route: 065
  13. INSULIN HUMAN [Concomitant]
     Dosage: UNK
     Route: 065
  14. PANCREATIN [Concomitant]
     Dosage: UNK
     Route: 065
  15. RETINOL [Concomitant]
     Indication: CYSTIC FIBROSIS
     Dosage: UNK
     Route: 065
  16. SALBUTAMOL [Concomitant]
     Dosage: 100 UG, UNKNOWN/D
     Route: 055

REACTIONS (6)
  - Potentiating drug interaction [Unknown]
  - Alopecia [Not Recovered/Not Resolved]
  - Renal disorder [Unknown]
  - Lip pain [Recovering/Resolving]
  - Skin exfoliation [Not Recovered/Not Resolved]
  - Stomatitis [Recovering/Resolving]
